FAERS Safety Report 24575483 (Version 1)
Quarter: 2024Q4

REPORT INFORMATION
  Report Type: Spontaneous
  Country: US (occurrence: US)
  Receive Date: 20241104
  Receipt Date: 20241104
  Transmission Date: 20250114
  Serious: No
  Sender: Haleon PLC
  Company Number: US-HALEON-2206231

PATIENT
  Age: 83 Year
  Sex: Female

DRUGS (1)
  1. SENSODYNE CLINICAL WHITE STAIN PROTECTOR [Suspect]
     Active Substance: POTASSIUM NITRATE\SODIUM FLUORIDE
     Indication: Dental cleaning

REACTIONS (1)
  - Dry mouth [Recovered/Resolved]
